FAERS Safety Report 26207835 (Version 1)
Quarter: 2025Q4

REPORT INFORMATION
  Report Type: Spontaneous
  Country: US (occurrence: US)
  Receive Date: 20251229
  Receipt Date: 20251229
  Transmission Date: 20260118
  Serious: No
  Sender: MYLAN
  Company Number: US-MYLANLABS-2025M1110990

PATIENT
  Sex: Female
  Weight: 44.45 kg

DRUGS (4)
  1. XANAX [Suspect]
     Active Substance: ALPRAZOLAM
     Indication: Anxiety
     Dosage: 0.25 MILLIGRAM (1 TABLET, THREE TIMES A DAY, AS NEEDED)
     Route: 061
  2. XANAX [Suspect]
     Active Substance: ALPRAZOLAM
     Dosage: 0.25 MILLIGRAM (1 TABLET, THREE TIMES A DAY, AS NEEDED)
     Route: 048
  3. XANAX [Suspect]
     Active Substance: ALPRAZOLAM
     Dosage: 0.25 MILLIGRAM (1 TABLET, THREE TIMES A DAY, AS NEEDED)
     Route: 048
  4. XANAX [Suspect]
     Active Substance: ALPRAZOLAM
     Dosage: 0.25 MILLIGRAM (1 TABLET, THREE TIMES A DAY, AS NEEDED)
     Route: 061

REACTIONS (1)
  - Off label use [Unknown]
